APPROVED DRUG PRODUCT: REMODULIN
Active Ingredient: TREPROSTINIL
Strength: 20MG/ML
Dosage Form/Route: INJECTABLE;INTRAVENOUS, SUBCUTANEOUS
Application: N021272 | Product #005
Applicant: UNITED THERAPEUTICS CORP
Approved: Jul 30, 2021 | RLD: Yes | RS: No | Type: DISCN

PATENTS:
Patent 7999007 | Expires: Mar 29, 2029
Patent 8653137 | Expires: Sep 5, 2028
Patent 8658694 | Expires: Sep 5, 2028
Patent 11723887 | Expires: Dec 15, 2028
Patent 9593066 | Expires: Dec 15, 2028